FAERS Safety Report 7996987-0 (Version None)
Quarter: 2011Q4

REPORT INFORMATION
  Report Type: 
  Country: None (occurrence: None)
  Receive Date: 20111221
  Receipt Date: 20111215
  Transmission Date: 20120403
  Serious: Yes (Death, Life-Threatening, Other)
  Sender: FDA-Public Use
  Company Number: PHHY2011JP28140

PATIENT
  Age: 60 Year
  Sex: Female

DRUGS (15)
  1. EXJADE [Suspect]
     Dosage: 250 MG, DAILY
     Route: 048
     Dates: start: 20100524, end: 20100530
  2. CIPROFLOXACIN HYDROCHLORIDE [Concomitant]
  3. HYDREA [Concomitant]
  4. EXJADE [Suspect]
     Indication: IRON OVERLOAD
     Dosage: 125 MG, DAILY
     Route: 048
     Dates: start: 20100517, end: 20100523
  5. RED BLOOD CELLS, CONCENTRATED [Concomitant]
     Dosage: 2 IU, QW
     Dates: start: 20100517, end: 20101115
  6. RED BLOOD CELLS, CONCENTRATED [Concomitant]
     Dosage: 2 U, QW
     Route: 065
     Dates: start: 20101116, end: 20110510
  7. POLYMYXIN B SULFATE [Concomitant]
     Indication: CHRONIC MYELOMONOCYTIC LEUKAEMIA
     Dosage: 3000000 IU, UNK
     Route: 048
     Dates: start: 20101116, end: 20110414
  8. EXJADE [Suspect]
     Dosage: 375 MG, DAILY
     Route: 048
     Dates: start: 20100531, end: 20100601
  9. EXJADE [Suspect]
     Dosage: 500 MG, DAILY
     Route: 048
     Dates: start: 20100602, end: 20110414
  10. FAMOTIDINE [Concomitant]
     Indication: CHRONIC MYELOMONOCYTIC LEUKAEMIA
     Dosage: 20 MG, UNK
     Route: 048
     Dates: start: 20090718
  11. VFEND [Concomitant]
  12. REBAMIPIDE [Concomitant]
     Indication: CHRONIC MYELOMONOCYTIC LEUKAEMIA
     Dosage: 300 MG, UNK
     Route: 048
     Dates: start: 20090724
  13. BLOOD TRANSFUSION, AUXILIARY PRODUCTS [Concomitant]
     Dates: start: 20090106
  14. BARACLUDE [Concomitant]
     Indication: CHRONIC MYELOMONOCYTIC LEUKAEMIA
     Dosage: 0.5 MG, UNK
     Route: 048
     Dates: start: 20090730
  15. BLOOD TRANSFUSION, AUXILIARY PRODUCTS [Concomitant]
     Dosage: UNK
     Dates: start: 20090514

REACTIONS (7)
  - OEDEMA PERIPHERAL [None]
  - NEOPLASM MALIGNANT [None]
  - RENAL IMPAIRMENT [None]
  - NEOPLASM PROGRESSION [None]
  - ALTERED STATE OF CONSCIOUSNESS [None]
  - HEPATIC FUNCTION ABNORMAL [None]
  - MULTI-ORGAN FAILURE [None]
